FAERS Safety Report 8031297-7 (Version None)
Quarter: 2012Q1

REPORT INFORMATION
  Report Type: 
  Country: None (occurrence: None)
  Receive Date: 20120109
  Receipt Date: 20120103
  Transmission Date: 20120608
  Serious: Yes (Hospitalization)
  Sender: FDA-Public Use
  Company Number: US-GLAXOSMITHKLINE-A0915703A

PATIENT
  Age: 73 Year
  Sex: Male

DRUGS (1)
  1. AVANDIA [Suspect]
     Indication: DIABETES MELLITUS
     Dosage: 8MG PER DAY
     Route: 048
     Dates: start: 20070309, end: 20100701

REACTIONS (13)
  - ARRHYTHMIA [None]
  - CEREBROVASCULAR ACCIDENT [None]
  - ARTERIOSCLEROSIS [None]
  - OEDEMA [None]
  - CORONARY ARTERY DISEASE [None]
  - HYPERTENSION [None]
  - GAIT DISTURBANCE [None]
  - ATRIAL FIBRILLATION [None]
  - ARTERIAL THERAPEUTIC PROCEDURE [None]
  - ELECTROCARDIOGRAM ABNORMAL [None]
  - CARDIOVASCULAR DISORDER [None]
  - DYSPNOEA [None]
  - CHEST PAIN [None]
